FAERS Safety Report 14249907 (Version 1)
Quarter: 2017Q4

REPORT INFORMATION
  Report Type: Spontaneous
  Country: US (occurrence: US)
  Receive Date: 20171205
  Receipt Date: 20171205
  Transmission Date: 20180321
  Serious: Yes (Other)
  Sender: FDA-Public Use
  Company Number: None

PATIENT
  Age: 18 Year
  Sex: Female
  Weight: 67.5 kg

DRUGS (4)
  1. LEVEMIR [Concomitant]
     Active Substance: INSULIN DETEMIR
  2. HUMALOG [Concomitant]
     Active Substance: INSULIN LISPRO
  3. ORTHO TRICYCLINE [Concomitant]
  4. MONISTAT 3 [Suspect]
     Active Substance: MICONAZOLE NITRATE
     Indication: FUNGAL INFECTION
     Dosage: QUANTITY:3 1;?AT BEDTIME
     Route: 067

REACTIONS (8)
  - Nausea [None]
  - Vaginal infection [None]
  - Pyrexia [None]
  - Hypersensitivity [None]
  - Pruritus [None]
  - Back pain [None]
  - Burning sensation [None]
  - Abdominal pain lower [None]

NARRATIVE: CASE EVENT DATE: 20171127
